FAERS Safety Report 4293087-0 (Version None)
Quarter: 2004Q1

REPORT INFORMATION
  Report Type: 
  Country: None (occurrence: None)
  Receive Date: 20040210
  Receipt Date: 20040128
  Transmission Date: 20041129
  Serious: Yes (Death)
  Sender: FDA-Public Use
  Company Number: J081-002-001540

PATIENT
  Age: 81 Year
  Sex: Female

DRUGS (3)
  1. ARICEPT [Suspect]
     Indication: DEMENTIA ALZHEIMER'S TYPE
     Dosage: 3 MG, 1 IN 1 D, ORAL; 5 MG, 1 IN 1 D, ORAL
     Route: 048
     Dates: start: 20011011, end: 20011024
  2. ARICEPT [Suspect]
     Indication: DEMENTIA ALZHEIMER'S TYPE
     Dosage: 3 MG, 1 IN 1 D, ORAL; 5 MG, 1 IN 1 D, ORAL
     Route: 048
     Dates: start: 20011025, end: 20031203
  3. METHYLCOBAL (MECOBALAMIN) [Concomitant]

REACTIONS (2)
  - CIRCULATORY COLLAPSE [None]
  - RUPTURED CEREBRAL ANEURYSM [None]
